FAERS Safety Report 9329244 (Version 1)
Quarter: 2013Q2

REPORT INFORMATION
  Report Type: Spontaneous
  Country: CN (occurrence: CN)
  Receive Date: 20130604
  Receipt Date: 20130604
  Transmission Date: 20140414
  Serious: Yes (Hospitalization, Other)
  Sender: FDA-Public Use
  Company Number: CN-GLAXOSMITHKLINE-B0893439A

PATIENT
  Age: 10 Year
  Sex: Male

DRUGS (3)
  1. LAMOTRIGINE [Suspect]
     Indication: EPILEPSY
     Route: 065
     Dates: start: 20111030
  2. OXCARBAZEPINE [Suspect]
     Indication: CONVULSION
  3. LEVETIRACETAM [Concomitant]
     Indication: EPILEPSY
     Dosage: 500MG TWICE PER DAY
     Route: 048
     Dates: start: 201110

REACTIONS (15)
  - Stevens-Johnson syndrome [Recovered/Resolved]
  - Drug eruption [Unknown]
  - Rash [Unknown]
  - Erythema [Unknown]
  - Conjunctival hyperaemia [Unknown]
  - Eye swelling [Unknown]
  - Rash erythematous [Unknown]
  - Dyspnoea [Unknown]
  - Pruritus [Unknown]
  - Rash maculo-papular [Unknown]
  - Rash [Unknown]
  - Blister [Unknown]
  - Ill-defined disorder [Unknown]
  - Oral mucosa erosion [Unknown]
  - Eye discharge [Unknown]
